FAERS Safety Report 9525354 (Version 1)
Quarter: 2013Q1

REPORT INFORMATION
  Report Type: Spontaneous
  Country: US (occurrence: None)
  Receive Date: 20130314
  Receipt Date: 20130314
  Transmission Date: 20140127
  Serious: No
  Sender: FDA-Public Use
  Company Number: 1212USA004361

PATIENT
  Age: 59 Year
  Sex: Male

DRUGS (3)
  1. VICTRELIS [Suspect]
     Indication: HEPATITIS C
     Dosage: 4 CAPSULES EVERY 8 HOURS, ORAL
     Route: 048
     Dates: start: 20120911, end: 20121203
  2. RIBASPHERE (RIBAVIRIN) [Suspect]
  3. PEGASYS (PEGINTERFERON ALFA-2A) [Suspect]

REACTIONS (1)
  - Drug ineffective [None]
